FAERS Safety Report 5586436-4 (Version None)
Quarter: 2008Q1

REPORT INFORMATION
  Report Type: 
  Country: None (occurrence: None)
  Receive Date: 20080108
  Receipt Date: 20080108
  Transmission Date: 20080703
  Serious: Yes (Other)
  Sender: FDA-Public Use
  Company Number: None

PATIENT
  Age: 18 Year
  Sex: Male
  Weight: 72.5755 kg

DRUGS (1)
  1. DOXEPIN HCL [Suspect]
     Indication: MIGRAINE PROPHYLAXIS
     Dosage: 10MG 1-2 TABS AT NIGHT PO
     Route: 048
     Dates: start: 20080102, end: 20080107

REACTIONS (2)
  - MUSCLE SPASMS [None]
  - TRISMUS [None]
